FAERS Safety Report 8998507 (Version 2)
Quarter: 2013Q1

REPORT INFORMATION
  Report Type: Spontaneous
  Country: US (occurrence: US)
  Receive Date: 20130103
  Receipt Date: 20130325
  Transmission Date: 20140127
  Serious: No
  Sender: FDA-Public Use
  Company Number: US-PFIZER INC-2012332521

PATIENT
  Sex: 0

DRUGS (1)
  1. CLINDAMYCIN HCL [Suspect]
     Indication: TOOTH INFECTION
     Dosage: UNK

REACTIONS (2)
  - Irritable bowel syndrome [Unknown]
  - Therapeutic response unexpected [Unknown]
